FAERS Safety Report 9000187 (Version 1)
Quarter: 2013Q1

REPORT INFORMATION
  Report Type: Report from Study
  Country: US (occurrence: US)
  Receive Date: 20130102
  Receipt Date: 20130102
  Transmission Date: 20140127
  Serious: Yes (Other)
  Sender: FDA-Public Use
  Company Number: US-VERTEX PHARMACEUTICALS INC.-2012-026806

PATIENT
  Age: 52 Year
  Sex: Female

DRUGS (6)
  1. VX-950 (TELAPREVIR) [Suspect]
     Indication: HEPATITIS C
     Dosage: 750 MG, TID
     Route: 048
  2. PEGASYS [Suspect]
     Indication: HEPATITIS C
     Dosage: 180 ?G, UNK
  3. RIBAVIRIN [Suspect]
     Indication: HEPATITIS C
     Dosage: 200 MG, UNK
  4. AMBIEN [Concomitant]
     Dosage: 10 MG, UNK
  5. BUSPAR [Concomitant]
     Dosage: 10 MG, UNK
  6. LORAZEPAM [Concomitant]
     Dosage: 1 MG, UNK

REACTIONS (1)
  - Blindness [Unknown]
